FAERS Safety Report 17259217 (Version 2)
Quarter: 2020Q1

REPORT INFORMATION
  Report Type: Spontaneous
  Country: DE (occurrence: DE)
  Receive Date: 20200110
  Receipt Date: 20200203
  Transmission Date: 20200409
  Serious: Yes (Hospitalization, Disabling)
  Sender: FDA-Public Use
  Company Number: DE-PFIZER INC-2020006256

PATIENT
  Age: 59 Year
  Sex: Male
  Weight: 97 kg

DRUGS (4)
  1. LYRICA [Suspect]
     Active Substance: PREGABALIN
     Indication: SURGERY
     Dosage: DAILY DOSE: 400 MG MILLGRAM(S) EVERY DAYS 2 SEPARATED DOSES
     Route: 048
     Dates: start: 20130201, end: 20131130
  2. PREGABALIN. [Suspect]
     Active Substance: PREGABALIN
     Indication: SURGERY
     Dosage: 200 MG, 4X/DAY
     Route: 048
     Dates: start: 20140501, end: 20140730
  3. LYRICA [Suspect]
     Active Substance: PREGABALIN
     Indication: NEUROPATHY PERIPHERAL
     Dosage: DAILY DOSE: 600 MG MILLGRAM(S) EVERY DAYS 3 SEPARATED DOSES
     Route: 048
     Dates: start: 20131201, end: 20140430
  4. PREGABALIN. [Suspect]
     Active Substance: PREGABALIN
     Indication: PERIPHERAL NERVE LESION

REACTIONS (40)
  - Myoclonus [Recovering/Resolving]
  - Vision blurred [Recovering/Resolving]
  - Headache [Recovering/Resolving]
  - Dyskinesia [Recovering/Resolving]
  - Delirium [Recovering/Resolving]
  - Gait disturbance [Recovering/Resolving]
  - Dysarthria [Recovering/Resolving]
  - Nightmare [Recovering/Resolving]
  - Nausea [Recovering/Resolving]
  - Pruritus [Recovering/Resolving]
  - Confusional state [Recovering/Resolving]
  - Disorientation [Recovering/Resolving]
  - Agitation [Recovering/Resolving]
  - Drug withdrawal syndrome [Recovering/Resolving]
  - Nystagmus [Recovering/Resolving]
  - Dysgraphia [Recovering/Resolving]
  - Aphasia [Recovering/Resolving]
  - Off label use [Unknown]
  - Flatulence [Recovering/Resolving]
  - Vomiting [Recovering/Resolving]
  - Insomnia [Recovering/Resolving]
  - Paraesthesia [Recovering/Resolving]
  - Fatigue [Recovering/Resolving]
  - Hyperhidrosis [Recovering/Resolving]
  - Dyspnoea [Recovering/Resolving]
  - Dizziness [Recovering/Resolving]
  - Weight increased [Recovering/Resolving]
  - Respiratory tract infection [Recovering/Resolving]
  - Dysphagia [Recovering/Resolving]
  - Oedema [Recovering/Resolving]
  - Product use in unapproved indication [Unknown]
  - Disturbance in attention [Recovering/Resolving]
  - Diplopia [Recovering/Resolving]
  - Somnolence [Recovering/Resolving]
  - Restlessness [Recovering/Resolving]
  - Pharyngitis [Recovering/Resolving]
  - Amnesia [Recovering/Resolving]
  - Anxiety [Recovering/Resolving]
  - Panic attack [Recovering/Resolving]
  - Prescribed overdose [Unknown]
